FAERS Safety Report 26099012 (Version 1)
Quarter: 2025Q4

REPORT INFORMATION
  Report Type: Spontaneous
  Country: EU (occurrence: EU)
  Receive Date: 20251128
  Receipt Date: 20251128
  Transmission Date: 20260118
  Serious: Yes (Other)
  Sender: AUROBINDO
  Company Number: EU-AFSSAPS-AN2025001435

PATIENT
  Age: 70 Year
  Sex: Male

DRUGS (7)
  1. TAMSULOSIN HYDROCHLORIDE [Suspect]
     Active Substance: TAMSULOSIN HYDROCHLORIDE
     Indication: Urinary tract disorder
     Dosage: 0.4 MILLIGRAM, ONCE A DAY
     Dates: start: 20231220
  2. VALACYCLOVIR HYDROCHLORIDE [Suspect]
     Active Substance: VALACYCLOVIR HYDROCHLORIDE
     Indication: Opportunistic infection prophylaxis
     Dosage: 1 GRAM, ONCE A DAY
     Dates: start: 20231220
  3. OBINUTUZUMAB [Suspect]
     Active Substance: OBINUTUZUMAB
     Indication: Chronic lymphocytic leukaemia
     Dosage: 1 GRAM
     Dates: start: 20231220, end: 20240510
  4. VENETOCLAX [Suspect]
     Active Substance: VENETOCLAX
     Indication: Chronic lymphocytic leukaemia
     Dosage: 400 MILLIGRAM, ONCE A DAY
     Dates: start: 20240110, end: 20250206
  5. LEUCOVORIN CALCIUM [Suspect]
     Active Substance: LEUCOVORIN CALCIUM
     Indication: Prophylaxis
     Dosage: 1 DOSAGE FORM, EVERY WEEK
     Dates: start: 20231220
  6. ELIQUIS [Suspect]
     Active Substance: APIXABAN
     Indication: Atrial fibrillation
     Dosage: 10 MILLIGRAM, ONCE A DAY
     Dates: start: 20231220
  7. BACTRIM [Suspect]
     Active Substance: SULFAMETHOXAZOLE\TRIMETHOPRIM
     Indication: Opportunistic infection prophylaxis
     Dosage: 3 DOSAGE FORM, EVERY WEEK
     Dates: start: 20231220

REACTIONS (1)
  - Interstitial lung disease [Not Recovered/Not Resolved]

NARRATIVE: CASE EVENT DATE: 20240501
